FAERS Safety Report 8318864-8 (Version None)
Quarter: 2012Q2

REPORT INFORMATION
  Report Type: 
  Country: None (occurrence: None)
  Receive Date: 20120427
  Receipt Date: 20120423
  Transmission Date: 20120825
  Serious: Yes (Hospitalization)
  Sender: FDA-Public Use
  Company Number: ZA-BAYER-2012-037941

PATIENT
  Sex: Male

DRUGS (2)
  1. AVELOX [Suspect]
     Dosage: UNK
     Dates: start: 20120201
  2. AVELOX [Suspect]
     Indication: EAR PAIN
     Dosage: DAILY DOSE 400 MG
     Route: 048
     Dates: start: 20120413

REACTIONS (5)
  - SPEECH DISORDER [None]
  - HYPERSENSITIVITY [None]
  - LOSS OF CONSCIOUSNESS [None]
  - CHILLS [None]
  - VOMITING [None]
